FAERS Safety Report 16731333 (Version 1)
Quarter: 2019Q3

REPORT INFORMATION
  Report Type: Spontaneous
  Country: US (occurrence: US)
  Receive Date: 20190822
  Receipt Date: 20190822
  Transmission Date: 20191005
  Serious: Yes (Hospitalization)
  Sender: FDA-Public Use
  Company Number: US-ASTRAZENECA-2019SF17458

PATIENT
  Age: 837 Month
  Sex: Female

DRUGS (19)
  1. ALBUTEROL. [Concomitant]
     Active Substance: ALBUTEROL
     Indication: WHEEZING
     Dosage: EVERY 6 HOURS AS NEEDED
     Route: 055
     Dates: start: 20190717
  2. DIAZEPAM. [Concomitant]
     Active Substance: DIAZEPAM
     Dosage: 10 MG NEEDED TWICE A DAY
  3. RANITIDINE. [Concomitant]
     Active Substance: RANITIDINE
     Indication: DYSPEPSIA
     Route: 048
  4. SYMBICORT [Suspect]
     Active Substance: BUDESONIDE\FORMOTEROL FUMARATE DIHYDRATE
     Indication: DYSPNOEA
     Dosage: 160/4.5, 2 PUFFS EVERY 12 HOURS
     Route: 055
     Dates: start: 20190717
  5. ATORVASTATIN [Concomitant]
     Active Substance: ATORVASTATIN
     Route: 048
  6. DYCLOMINE [Concomitant]
     Route: 048
  7. SYMBICORT [Suspect]
     Active Substance: BUDESONIDE\FORMOTEROL FUMARATE DIHYDRATE
     Indication: DYSPNOEA
     Dosage: 160/4.5, 1 PUFFS EVERY 12 HOURS
     Route: 055
  8. BUSPUR [Concomitant]
     Route: 048
  9. LINZESS [Concomitant]
     Active Substance: LINACLOTIDE
     Route: 048
  10. BREO ELLIPTA [Concomitant]
     Active Substance: FLUTICASONE FUROATE\VILANTEROL TRIFENATATE
     Dosage: 1 DAILY
     Route: 055
  11. MOVANTIK [Suspect]
     Active Substance: NALOXEGOL OXALATE
     Indication: CONSTIPATION
     Route: 048
     Dates: start: 201907, end: 201907
  12. ASPIRIN. [Concomitant]
     Active Substance: ASPIRIN
     Route: 048
  13. NARCO [Concomitant]
     Indication: PAIN
     Dosage: 10/ 325MG 2 TABLETS, AS NEEDED
     Route: 048
  14. NARCO [Concomitant]
     Indication: PAIN
     Dosage: FOUR TIMES A DAY
     Route: 048
  15. MECLIZINE [Concomitant]
     Active Substance: MECLIZINE HYDROCHLORIDE
     Indication: DIZZINESS
     Dosage: 25.0MG AS REQUIRED
     Route: 065
  16. PANTOPROZOLE [Concomitant]
     Route: 048
  17. METOPROLOL TARTRATE. [Suspect]
     Active Substance: METOPROLOL TARTRATE
     Route: 048
  18. AMITRIPTYLINE [Concomitant]
     Active Substance: AMITRIPTYLINE
     Indication: PAIN
     Route: 048
  19. AMITRIPTYLINE [Concomitant]
     Active Substance: AMITRIPTYLINE
     Indication: INSOMNIA
     Route: 048

REACTIONS (8)
  - Wheezing [Unknown]
  - Hypertension [Unknown]
  - Angioedema [Not Recovered/Not Resolved]
  - Dyspnoea [Unknown]
  - Diabetes mellitus [Unknown]
  - Chronic obstructive pulmonary disease [Unknown]
  - Coronary artery disease [Unknown]
  - Constipation [Unknown]

NARRATIVE: CASE EVENT DATE: 201907
